FAERS Safety Report 9732182 (Version 1)
Quarter: 2013Q4

REPORT INFORMATION
  Report Type: Spontaneous
  Country: ES (occurrence: ES)
  Receive Date: 20131205
  Receipt Date: 20131205
  Transmission Date: 20140711
  Serious: Yes (Other)
  Sender: FDA-Public Use
  Company Number: PHHY2013ES138752

PATIENT
  Sex: 0

DRUGS (1)
  1. ZOLEDRONIC ACID [Suspect]
     Indication: PLASMA CELL MYELOMA

REACTIONS (2)
  - Osteonecrosis of jaw [Recovering/Resolving]
  - Ulcer [Recovering/Resolving]
